FAERS Safety Report 5170840-2 (Version None)
Quarter: 2006Q4

REPORT INFORMATION
  Report Type: 
  Country: None (occurrence: None)
  Receive Date: 20061206
  Receipt Date: 20061206
  Transmission Date: 20070319
  Serious: No
  Sender: FDA-Public Use
  Company Number: None

PATIENT
  Age: 5 Week
  Sex: Male

DRUGS (2)
  1. PRILOSEC [Suspect]
     Dosage: CAPSULE
  2. SODIUM BICARBONATE [Suspect]
     Dosage: LIQUID

REACTIONS (3)
  - CONDITION AGGRAVATED [None]
  - DRUG DISPENSING ERROR [None]
  - MEDICATION ERROR [None]
